FAERS Safety Report 6095601-1 (Version None)
Quarter: 2009Q1

REPORT INFORMATION
  Report Type: 
  Country: None (occurrence: None)
  Receive Date: 20090227
  Receipt Date: 20080429
  Transmission Date: 20090719
  Serious: Yes (Other)
  Sender: FDA-Public Use
  Company Number: A0726146A

PATIENT

DRUGS (3)
  1. LAMICTAL [Suspect]
     Dosage: 100MG UNKNOWN
     Route: 048
  2. WELLBUTRIN XL [Suspect]
     Route: 048
  3. PAXIL CR [Suspect]
     Route: 048

REACTIONS (3)
  - ANGER [None]
  - HYPOMANIA [None]
  - IRRITABILITY [None]
